FAERS Safety Report 18497661 (Version 1)
Quarter: 2020Q4

REPORT INFORMATION
  Report Type: Report from Study
  Country: US (occurrence: US)
  Receive Date: 20201112
  Receipt Date: 20201112
  Transmission Date: 20210114
  Serious: Yes (Other)
  Sender: FDA-Public Use
  Company Number: US-JNJFOC-20201109915

PATIENT
  Age: 57 Year
  Sex: Female

DRUGS (6)
  1. ELMIRON [Concomitant]
     Active Substance: PENTOSAN POLYSULFATE SODIUM
  2. SYMBICORT [Concomitant]
     Active Substance: BUDESONIDE\FORMOTEROL FUMARATE DIHYDRATE
  3. RESTASIS [Concomitant]
     Active Substance: CYCLOSPORINE
  4. MONTELUKAST [Concomitant]
     Active Substance: MONTELUKAST SODIUM
  5. STELARA [Suspect]
     Active Substance: USTEKINUMAB
     Indication: CROHN^S DISEASE
     Route: 058
     Dates: start: 20171117
  6. STELARA [Suspect]
     Active Substance: USTEKINUMAB
     Route: 058
     Dates: start: 202010

REACTIONS (1)
  - Crohn^s disease [Not Recovered/Not Resolved]

NARRATIVE: CASE EVENT DATE: 202010
